FAERS Safety Report 22104085 (Version 1)
Quarter: 2023Q1

REPORT INFORMATION
  Report Type: Spontaneous
  Country: FR (occurrence: FR)
  Receive Date: 20230316
  Receipt Date: 20230316
  Transmission Date: 20230418
  Serious: Yes (Hospitalization)
  Sender: FDA-Public Use
  Company Number: None

PATIENT
  Age: 58 Year
  Sex: Male

DRUGS (8)
  1. OLANZAPINE [Suspect]
     Active Substance: OLANZAPINE
     Indication: Bipolar disorder
     Dosage: 5 MILLIGRAM DAILY; 5 MG IN THE EVENING
     Route: 065
     Dates: start: 202302
  2. RAMIPRIL [Suspect]
     Active Substance: RAMIPRIL
     Indication: Hypertension
     Dosage: 10 MILLIGRAM DAILY; 10MG IN THE MORNING
     Route: 065
     Dates: end: 20230217
  3. DIAZEPAM [Suspect]
     Active Substance: DIAZEPAM
     Indication: Bipolar disorder
     Dosage: 15 MILLIGRAM DAILY; 5 MG MORNING, NOON AND EVENING
     Route: 065
  4. VALPROIC ACID [Suspect]
     Active Substance: VALPROIC ACID
     Indication: Bipolar disorder
     Dosage: 2 GRAM DAILY; 2 TABLETS OF 500 MG MORNING AND EVENING
     Route: 065
     Dates: start: 202212
  5. ALFUZOSIN HYDROCHLORIDE [Suspect]
     Active Substance: ALFUZOSIN HYDROCHLORIDE
     Indication: Benign prostatic hyperplasia
     Dosage: 10 MILLIGRAM DAILY; 10MG IN THE EVENING
     Route: 065
     Dates: end: 20230217
  6. EZETIMIBE [Suspect]
     Active Substance: EZETIMIBE
     Indication: Hypercholesterolaemia
     Dosage: 10 MILLIGRAM DAILY; 10MG IN THE EVENING
     Route: 065
     Dates: end: 20230217
  7. ELIQUIS [Suspect]
     Active Substance: APIXABAN
     Indication: Thrombosis prophylaxis
     Dosage: 2 DOSAGE FORMS DAILY; 1 TAB OF 2.5 MG MORNING AND EVENING
     Route: 065
     Dates: end: 20230217
  8. LORMETAZEPAM [Suspect]
     Active Substance: LORMETAZEPAM
     Indication: Insomnia
     Dosage: 2 MILLIGRAM DAILY; 2MG AT BEDTIME
     Route: 065
     Dates: end: 20230217

REACTIONS (1)
  - Pancreatitis acute [Recovering/Resolving]

NARRATIVE: CASE EVENT DATE: 20230217
